FAERS Safety Report 19241735 (Version 1)
Quarter: 2021Q2

REPORT INFORMATION
  Report Type: Spontaneous
  Country: US (occurrence: US)
  Receive Date: 20210511
  Receipt Date: 20210511
  Transmission Date: 20210717
  Serious: Yes (Other)
  Sender: FDA-Public Use
  Company Number: None

PATIENT
  Age: 74 Year
  Sex: Female
  Weight: 85.5 kg

DRUGS (8)
  1. CLONIDINE 0.1MG/24HR TRANDSDERMAL PATCH [Concomitant]
  2. OMEPRAZOLE 40MG [Concomitant]
     Active Substance: OMEPRAZOLE
  3. TRAMADOL 50MG [Concomitant]
     Active Substance: TRAMADOL
  4. SOLIFENACIN 10MG [Concomitant]
     Active Substance: SOLIFENACIN SUCCINATE
  5. AIMOVIG [Suspect]
     Active Substance: ERENUMAB-AOOE
     Dosage: ?          OTHER FREQUENCY:ONCE MONTHLY;?
     Route: 058
     Dates: start: 20210504
  6. SUCRALFATE 1G [Concomitant]
  7. AMLODIPINE [Concomitant]
     Active Substance: AMLODIPINE BESYLATE
  8. TRESIBA FLEXTOUCH U?200 [Concomitant]

REACTIONS (3)
  - Blood pressure increased [None]
  - Headache [None]
  - Fatigue [None]

NARRATIVE: CASE EVENT DATE: 20210510
